FAERS Safety Report 11878871 (Version 1)
Quarter: 2015Q4

REPORT INFORMATION
  Report Type: Spontaneous
  Country: PT (occurrence: PT)
  Receive Date: 20151230
  Receipt Date: 20151230
  Transmission Date: 20160305
  Serious: Yes (Hospitalization, Other)
  Sender: FDA-Public Use
  Company Number: PT-MYLANLABS-2015M1046377

PATIENT

DRUGS (2)
  1. VANCOMYCIN [Suspect]
     Active Substance: VANCOMYCIN
     Dosage: UNK
  2. CLINDAMYCIN [Suspect]
     Active Substance: CLINDAMYCIN\CLINDAMYCIN PHOSPHATE
     Dosage: UNK

REACTIONS (9)
  - Cavernous sinus thrombosis [Unknown]
  - Dermatitis exfoliative [Unknown]
  - Hepatocellular injury [Unknown]
  - Mastoiditis [Unknown]
  - Toxic skin eruption [Unknown]
  - Hepatomegaly [Unknown]
  - Pruritus [Unknown]
  - Inflammatory marker increased [Unknown]
  - Rash generalised [Unknown]
